FAERS Safety Report 19942361 (Version 1)
Quarter: 2021Q4

REPORT INFORMATION
  Report Type: Spontaneous
  Country: US (occurrence: US)
  Receive Date: 20211007
  Receipt Date: 20211007
  Transmission Date: 20220303
  Serious: Yes (Death)
  Sender: FDA-Public Use
  Company Number: None

PATIENT
  Age: 56 Year
  Sex: Male

DRUGS (1)
  1. OXALIPLATIN [Suspect]
     Active Substance: OXALIPLATIN
     Dosage: ?          OTHER FREQUENCY:UNKNOWN;
     Route: 042
     Dates: start: 202101

REACTIONS (1)
  - Death [None]

NARRATIVE: CASE EVENT DATE: 20210717
